FAERS Safety Report 25188823 (Version 1)
Quarter: 2025Q2

REPORT INFORMATION
  Report Type: Spontaneous
  Country: JP (occurrence: JP)
  Receive Date: 20250411
  Receipt Date: 20250411
  Transmission Date: 20250717
  Serious: Yes (Hospitalization)
  Sender: INSMED
  Company Number: JP-INSMED, INC.-2025-01247-JP

PATIENT

DRUGS (1)
  1. ARIKAYCE [Suspect]
     Active Substance: AMIKACIN
     Indication: Mycobacterium avium complex infection
     Route: 055
     Dates: start: 2022

REACTIONS (1)
  - Hospitalisation [Unknown]
